FAERS Safety Report 9799028 (Version 1)
Quarter: 2014Q1

REPORT INFORMATION
  Report Type: Spontaneous
  Country: US (occurrence: US)
  Receive Date: 20140106
  Receipt Date: 20140106
  Transmission Date: 20141002
  Serious: No
  Sender: FDA-Public Use
  Company Number: US-GILEAD-2010-0032406

PATIENT
  Age: 80 Year
  Sex: Female
  Weight: 48.99 kg

DRUGS (6)
  1. LETAIRIS [Suspect]
     Indication: PULMONARY ARTERIAL HYPERTENSION
     Route: 048
     Dates: start: 20100909, end: 20101006
  2. TOPROL XL [Concomitant]
  3. ASPIRIN [Concomitant]
  4. PRILOSEC [Concomitant]
  5. TYLENOL [Concomitant]
  6. MULTIVITAMIN [Concomitant]

REACTIONS (3)
  - Pain in extremity [Unknown]
  - Erythema [Unknown]
  - Local swelling [Unknown]
